FAERS Safety Report 13255350 (Version 2)
Quarter: 2017Q1

REPORT INFORMATION
  Report Type: Spontaneous
  Country: US (occurrence: US)
  Receive Date: 20170221
  Receipt Date: 20170313
  Transmission Date: 20170428
  Serious: No
  Sender: FDA-Public Use
  Company Number: US-JNJFOC-20170208559

PATIENT
  Sex: Female
  Weight: 58.97 kg

DRUGS (2)
  1. INVEGA SUSTENNA [Suspect]
     Active Substance: PALIPERIDONE PALMITATE
     Indication: SCHIZOAFFECTIVE DISORDER
     Route: 030
     Dates: start: 20170107, end: 2017
  2. INVEGA SUSTENNA [Suspect]
     Active Substance: PALIPERIDONE PALMITATE
     Indication: SCHIZOAFFECTIVE DISORDER
     Route: 030
     Dates: start: 201611, end: 2017

REACTIONS (7)
  - Feeling abnormal [Unknown]
  - Muscle twitching [Unknown]
  - Abnormal dreams [Unknown]
  - Tardive dyskinesia [Unknown]
  - Treatment noncompliance [Unknown]
  - Thinking abnormal [Unknown]
  - Poor quality sleep [Unknown]
